FAERS Safety Report 17190345 (Version 1)
Quarter: 2019Q4

REPORT INFORMATION
  Report Type: Spontaneous
  Country: US (occurrence: US)
  Receive Date: 20191130
  Receipt Date: 20191130
  Transmission Date: 20200122
  Serious: Yes (Hospitalization)
  Sender: FDA-Public Use
  Company Number: None

PATIENT
  Age: 58 Year
  Sex: Female

DRUGS (1)
  1. AMBRISENTAN 5 MG ACTAVIS PHARMA [Suspect]
     Active Substance: AMBRISENTAN
     Indication: PULMONARY ARTERIAL HYPERTENSION
     Route: 048
     Dates: start: 20190921

REACTIONS (5)
  - Respiratory rate increased [None]
  - Fluid retention [None]
  - Dyspnoea [None]
  - Heart rate increased [None]
  - Abdominal distension [None]

NARRATIVE: CASE EVENT DATE: 201911
